FAERS Safety Report 9733395 (Version 1)
Quarter: 2013Q4

REPORT INFORMATION
  Report Type: Spontaneous
  Country: US (occurrence: US)
  Receive Date: 20131205
  Receipt Date: 20131205
  Transmission Date: 20140711
  Serious: No
  Sender: FDA-Public Use
  Company Number: US-009507513-1311USA012778

PATIENT
  Sex: Male

DRUGS (1)
  1. PEGINTRON [Suspect]
     Dosage: 150 MICROGRAM, QW,REDIPEN
     Dates: start: 201308

REACTIONS (3)
  - Drug dose omission [Unknown]
  - Incorrect product storage [Unknown]
  - No adverse event [Unknown]
